FAERS Safety Report 8250384-1 (Version None)
Quarter: 2012Q1

REPORT INFORMATION
  Report Type: 
  Country: None (occurrence: None)
  Receive Date: 20120328
  Receipt Date: 20120323
  Transmission Date: 20120608
  Serious: Yes (Other)
  Sender: FDA-Public Use
  Company Number: ACO_29168_2012

PATIENT
  Age: 59 Year
  Sex: Male
  Weight: 131.5 kg

DRUGS (11)
  1. CARDURA [Suspect]
     Indication: PRODUCT USED FOR UNKNOWN INDICATION
     Dosage: UNK
     Dates: end: 20120101
  2. ANTIHYPERTENSIVES (ANTIHYPERTENSIVES) ONGOING [Concomitant]
  3. NAMENDA [Concomitant]
  4. COREG [Concomitant]
  5. TYSABRI (NATALIZUMAB) ONGOING [Concomitant]
  6. TARKA [Concomitant]
  7. DIURETICS () [Suspect]
     Indication: PRODUCT USED FOR UNKNOWN INDICATION
     Dosage: UNK
     Dates: end: 20120101
  8. ARICEPT (DONEPEZIL HYDROCHLORIDE) ONGOING [Concomitant]
  9. AMANTADINE (AMANTADINE) ONGOING [Concomitant]
  10. AMPYRA [Suspect]
     Indication: GAIT DISTURBANCE
     Dosage: 10 MG, BID, ORAL
     Route: 048
     Dates: start: 20111201, end: 20120101
  11. GLIPIZIDE (GLIPIZIDE) ONGOING [Concomitant]

REACTIONS (1)
  - RENAL FAILURE ACUTE [None]
